FAERS Safety Report 8182867-7 (Version None)
Quarter: 2012Q1

REPORT INFORMATION
  Report Type: 
  Country: None (occurrence: None)
  Receive Date: 20120305
  Receipt Date: 20120223
  Transmission Date: 20120608
  Serious: Yes (Other)
  Sender: FDA-Public Use
  Company Number: JP-BRISTOL-MYERS SQUIBB COMPANY-16419558

PATIENT

DRUGS (5)
  1. BARACLUDE [Suspect]
     Route: 048
  2. ZOVIRAX [Concomitant]
  3. LANSOPRAZOLE [Concomitant]
  4. NEORAL [Concomitant]
  5. ARMODAFINIL [Concomitant]
     Dosage: DIFLUCAN CP

REACTIONS (3)
  - LIVER DISORDER [None]
  - HEPATITIS B DNA INCREASED [None]
  - GRAFT VERSUS HOST DISEASE [None]
